FAERS Safety Report 9967982 (Version 1)
Quarter: 2014Q1

REPORT INFORMATION
  Report Type: Spontaneous
  Country: US (occurrence: US)
  Receive Date: 20140306
  Receipt Date: 20140306
  Transmission Date: 20141002
  Serious: No
  Sender: FDA-Public Use
  Company Number: US-ABBVIE-13P-163-1143695-00

PATIENT
  Age: 43 Year
  Sex: Male
  Weight: 113.5 kg

DRUGS (4)
  1. HUMIRA [Suspect]
     Indication: PSORIASIS
     Dates: start: 201302, end: 201302
  2. HUMIRA [Suspect]
     Dates: start: 201302, end: 201306
  3. HUMIRA [Suspect]
     Dates: start: 201306, end: 201306
  4. HUMIRA [Suspect]
     Dates: start: 201306

REACTIONS (4)
  - Injection site vesicles [Recovered/Resolved]
  - Injection site bruising [Not Recovered/Not Resolved]
  - Drug ineffective [Not Recovered/Not Resolved]
  - Psoriasis [Recovering/Resolving]
